FAERS Safety Report 19036740 (Version 1)
Quarter: 2021Q1

REPORT INFORMATION
  Report Type: Spontaneous
  Country: US (occurrence: US)
  Receive Date: 20210321
  Receipt Date: 20210321
  Transmission Date: 20210420
  Serious: Yes (Life-Threatening, Hospitalization, Disabling, Other)
  Sender: FDA-Public Use
  Company Number: None

PATIENT
  Age: 71 Year
  Sex: Female
  Weight: 114.3 kg

DRUGS (13)
  1. PRAMIPEXOLE DIHYDROCHLORIDE. [Suspect]
     Active Substance: PRAMIPEXOLE DIHYDROCHLORIDE
     Indication: RESTLESS LEGS SYNDROME
     Dosage: ?          QUANTITY:2 TABLET(S);?
  2. METFORMIN [Concomitant]
     Active Substance: METFORMIN HYDROCHLORIDE
  3. C [Concomitant]
  4. LIPITOR [Concomitant]
     Active Substance: ATORVASTATIN CALCIUM
  5. VITAMIN B12 [Concomitant]
     Active Substance: CYANOCOBALAMIN
  6. TRESIBA [Concomitant]
     Active Substance: INSULIN DEGLUDEC
  7. MYRBETRIQ [Concomitant]
     Active Substance: MIRABEGRON
  8. D [Concomitant]
  9. MAGNESIUM SUPPLEMENT [Concomitant]
     Active Substance: MAGNESIUM
  10. CYMBALTA [Concomitant]
     Active Substance: DULOXETINE HYDROCHLORIDE
  11. AZULFIDINE [Concomitant]
     Active Substance: SULFASALAZINE
  12. NOVOLOG [Concomitant]
     Active Substance: INSULIN ASPART
  13. DULOXITINE [Concomitant]
     Active Substance: DULOXETINE

REACTIONS (6)
  - Incontinence [None]
  - Escherichia infection [None]
  - Urinary tract infection [None]
  - Sepsis [None]
  - Emotional disorder [None]
  - Social problem [None]

NARRATIVE: CASE EVENT DATE: 20210321
